FAERS Safety Report 5866095-3 (Version None)
Quarter: 2008Q3

REPORT INFORMATION
  Report Type: 
  Country: None (occurrence: None)
  Receive Date: 20080829
  Receipt Date: 20080820
  Transmission Date: 20090109
  Serious: Yes (Other)
  Sender: FDA-Public Use
  Company Number: JP-PFIZER INC-2008066341

PATIENT
  Sex: Male
  Weight: 66 kg

DRUGS (4)
  1. SOLU-CORTEF [Suspect]
     Indication: ASTHMA
     Dates: start: 20080723, end: 20080726
  2. MEDICON [Concomitant]
     Indication: COUGH
     Route: 048
  3. THEOPHYLLINE [Concomitant]
     Route: 048
  4. FLUTIDE [Concomitant]
     Route: 048
     Dates: start: 20080720, end: 20080801

REACTIONS (2)
  - INJECTION SITE ERYTHEMA [None]
  - VASCULITIS [None]
